FAERS Safety Report 16462674 (Version 3)
Quarter: 2019Q4

REPORT INFORMATION
  Report Type: Report from Study
  Country: US (occurrence: US)
  Receive Date: 20190621
  Receipt Date: 20191205
  Transmission Date: 20200122
  Serious: Yes (Death, Hospitalization)
  Sender: FDA-Public Use
  Company Number: US-B.I. PHARMACEUTICALS,INC./RIDGEFIELD-2018-BI-036931

PATIENT
  Age: 76 Year
  Sex: Male

DRUGS (1)
  1. OFEV [Suspect]
     Active Substance: NINTEDANIB
     Indication: IDIOPATHIC PULMONARY FIBROSIS
     Route: 048
     Dates: start: 20180308

REACTIONS (11)
  - Death [Fatal]
  - Pneumonia [Recovered/Resolved]
  - Taste disorder [Unknown]
  - Diarrhoea [Unknown]
  - Cough [Unknown]
  - Blood blister [Recovered/Resolved]
  - Dyspnoea exertional [Unknown]
  - Hypotension [Unknown]
  - Productive cough [Unknown]
  - Fatigue [Unknown]
  - Dizziness [Unknown]

NARRATIVE: CASE EVENT DATE: 20190513
